FAERS Safety Report 24285528 (Version 1)
Quarter: 2024Q3

REPORT INFORMATION
  Report Type: Spontaneous
  Country: US (occurrence: US)
  Receive Date: 20240905
  Receipt Date: 20240905
  Transmission Date: 20241017
  Serious: No
  Sender: SANOFI AVENTIS
  Company Number: US-SANOFI-02189730

PATIENT
  Age: 63 Year
  Sex: Female

DRUGS (3)
  1. LANTUS [Suspect]
     Active Substance: INSULIN GLARGINE
     Indication: Type 2 diabetes mellitus
     Dosage: 40 IU, QD
     Route: 065
  2. SODIUM [Concomitant]
     Active Substance: SODIUM
     Dosage: UNK
  3. ADMELOG [Concomitant]
     Active Substance: INSULIN LISPRO
     Dosage: 10 U

REACTIONS (1)
  - Visual impairment [Not Recovered/Not Resolved]
